FAERS Safety Report 5619349-X (Version None)
Quarter: 2008Q1

REPORT INFORMATION
  Report Type: 
  Country: None (occurrence: None)
  Receive Date: 20080114
  Receipt Date: 20070308
  Transmission Date: 20080703
  Serious: Yes (Other)
  Sender: FDA-Public Use
  Company Number: A03200701920

PATIENT
  Age: 80 Year
  Sex: Male

DRUGS (12)
  1. PLAVIX [Suspect]
     Indication: STENT PLACEMENT
     Dosage: 75 MG QD - ORAL
     Route: 048
     Dates: start: 20040101
  2. CLOPIDOGREL [Suspect]
     Indication: STENT PLACEMENT
     Dosage: ORAL
     Route: 048
     Dates: end: 20070101
  3. QUININE [Concomitant]
  4. GLIPIZIDE [Concomitant]
  5. METFORMIN HCL [Concomitant]
  6. ALPRAZOLAM [Concomitant]
  7. ACETYLSALICYLIC ACID SRT [Concomitant]
  8. LISINOPRIL [Concomitant]
  9. RANITIDINE HYDROCHLORIDE [Concomitant]
  10. THEOPHYLLINE [Concomitant]
  11. ATORVASTATIN [Concomitant]
  12. SIMVASTATIN [Concomitant]

REACTIONS (8)
  - ARTHRALGIA [None]
  - ASTHENIA [None]
  - BURNING SENSATION [None]
  - CORONARY ARTERY OCCLUSION [None]
  - DYSPNOEA [None]
  - FEELING ABNORMAL [None]
  - MUSCULOSKELETAL PAIN [None]
  - STENT OCCLUSION [None]
